FAERS Safety Report 7345562-X (Version None)
Quarter: 2011Q1

REPORT INFORMATION
  Report Type: 
  Country: None (occurrence: None)
  Receive Date: 20110310
  Receipt Date: 20110304
  Transmission Date: 20110831
  Serious: Yes (Hospitalization)
  Sender: FDA-Public Use
  Company Number: IT-GILEAD-2011-0034820

PATIENT
  Sex: Male
  Weight: 86 kg

DRUGS (17)
  1. ATORVASTATIN [Concomitant]
     Indication: HYPERCHOLESTEROLAEMIA
     Dates: start: 20080401
  2. WARFARIN [Concomitant]
     Indication: ATRIAL FIBRILLATION
     Dates: start: 20101107
  3. OXYGEN [Concomitant]
     Indication: OXYGEN SUPPLEMENTATION
     Dates: start: 20090101
  4. ALENDRONIC ACID [Concomitant]
     Indication: OSTEOPOROSIS PROPHYLAXIS
     Dates: start: 20080401
  5. CACIVIT/VIT D3 [Concomitant]
     Indication: VITAMIN SUPPLEMENTATION
     Dates: start: 20100401
  6. GLYBURIDE AND METFORMIN HYDROCHLORIDE [Concomitant]
     Indication: DIABETES MELLITUS
     Dates: start: 20080401
  7. AMBRISENTAN [Suspect]
     Indication: PULMONARY ARTERIAL HYPERTENSION
     Route: 048
     Dates: start: 20101108, end: 20101205
  8. CARVEDILOL [Concomitant]
     Indication: HYPERTENSION
     Dates: start: 20080401
  9. CANRENOATE [Concomitant]
     Dates: start: 20080301, end: 20101208
  10. DELTACORTENE [Concomitant]
     Indication: IDIOPATHIC PULMONARY FIBROSIS
     Dates: start: 20041201
  11. LEVODROPROPIZINA [Concomitant]
     Indication: COUGH
     Dates: start: 20080401
  12. SUCRALFATO [Concomitant]
     Indication: PROPHYLAXIS AGAINST GASTROINTESTINAL ULCER
     Dates: start: 20080401
  13. ENOXEPARINE [Concomitant]
     Indication: ATRIAL FIBRILLATION
     Dates: start: 20101106
  14. CANRENOATE [Concomitant]
     Indication: HYPERTENSION
     Dates: start: 20101208
  15. ACETYLCYSTEINE [Concomitant]
     Indication: IDIOPATHIC PULMONARY FIBROSIS
     Dates: start: 20041201
  16. WARFARIN [Concomitant]
     Dates: start: 19980101, end: 20101102
  17. PANTOPRAZOL [Concomitant]
     Indication: PROPHYLAXIS AGAINST GASTROINTESTINAL ULCER
     Dates: start: 20080401

REACTIONS (1)
  - IDIOPATHIC PULMONARY FIBROSIS [None]
